FAERS Safety Report 14141797 (Version 1)
Quarter: 2017Q4

REPORT INFORMATION
  Report Type: Spontaneous
  Country: GB (occurrence: GB)
  Receive Date: 20171030
  Receipt Date: 20171030
  Transmission Date: 20180321
  Serious: Yes (Death, Other)
  Sender: FDA-Public Use
  Company Number: GB-TEVA-818639ACC

PATIENT
  Age: 15 Year
  Sex: Female

DRUGS (1)
  1. METHOTREXATE SODIUM. [Suspect]
     Active Substance: METHOTREXATE SODIUM
     Indication: LEUKAEMIA
     Dosage: UNK
     Route: 048

REACTIONS (10)
  - Respiratory tract haemorrhage [Fatal]
  - Headache [Unknown]
  - Acute promyelocytic leukaemia [Fatal]
  - Renal failure [Fatal]
  - Skin fissures [Unknown]
  - Asphyxia [Fatal]
  - Toxicity to various agents [Fatal]
  - Epistaxis [Unknown]
  - Drug interaction [Fatal]
  - Blister [Unknown]

NARRATIVE: CASE EVENT DATE: 20130119
